FAERS Safety Report 8780753 (Version 1)
Quarter: 2012Q4

REPORT INFORMATION
  Report Type: 
  Country: AU (occurrence: AU)
  Receive Date: 20120913
  Receipt Date: 20120913
  Transmission Date: 20130627
  Serious: Yes (Life-Threatening)
  Sender: FDA-Public Use
  Company Number: AU-SANOFI-AVENTIS-2012SA065262

PATIENT
  Sex: Male

DRUGS (2)
  1. CLEXANE [Suspect]
     Indication: FIBRILLATION ATRIAL
     Route: 065
  2. DABIGATRAN ETEXILATE [Concomitant]
     Indication: FIBRILLATION ATRIAL
     Dates: start: 20120727

REACTIONS (3)
  - Cerebrovascular accident [Unknown]
  - Brain oedema [Unknown]
  - Cerebral haemorrhage [Unknown]
